FAERS Safety Report 6185209-1 (Version None)
Quarter: 2009Q2

REPORT INFORMATION
  Report Type: 
  Country: None (occurrence: None)
  Receive Date: 20090511
  Receipt Date: 20090430
  Transmission Date: 20091009
  Serious: Yes (Hospitalization, Other)
  Sender: FDA-Public Use
  Company Number: US-BIOGENIDEC-2009BI010076

PATIENT
  Age: 55 Year
  Sex: Male

DRUGS (2)
  1. AVONEX [Suspect]
     Indication: MULTIPLE SCLEROSIS
     Route: 030
     Dates: start: 20060811
  2. AVONEX [Suspect]
     Route: 030
     Dates: start: 19990201, end: 20060601

REACTIONS (3)
  - CONVULSION [None]
  - PERICARDITIS INFECTIVE [None]
  - PNEUMONIA [None]
